FAERS Safety Report 5641402-5 (Version None)
Quarter: 2008Q1

REPORT INFORMATION
  Report Type: 
  Country: None (occurrence: None)
  Receive Date: 20080227
  Receipt Date: 20070801
  Transmission Date: 20080703
  Serious: No
  Sender: FDA-Public Use
  Company Number: A0667283A

PATIENT
  Age: 31 Year
  Sex: Male

DRUGS (1)
  1. NICORETTE (MINT) [Suspect]

REACTIONS (5)
  - DIZZINESS [None]
  - HUNGER [None]
  - MALAISE [None]
  - NAUSEA [None]
  - VOMITING [None]
